FAERS Safety Report 23657543 (Version 3)
Quarter: 2024Q4

REPORT INFORMATION
  Report Type: Spontaneous
  Country: US (occurrence: US)
  Receive Date: 20240321
  Receipt Date: 20241227
  Transmission Date: 20250115
  Serious: No
  Sender: PFIZER
  Company Number: US-PFIZER INC-202400068881

PATIENT
  Age: 67 Year
  Sex: Male
  Weight: 86.18 kg

DRUGS (4)
  1. INLYTA [Suspect]
     Active Substance: AXITINIB
     Indication: Renal cell carcinoma stage IV
     Dosage: 5 MG, 2X/DAY (TAKE 5 MG PO TWICE DAILY)
     Route: 048
     Dates: start: 20240216, end: 20240314
  2. INLYTA [Suspect]
     Active Substance: AXITINIB
     Indication: Renal cancer
  3. KEYTRUDA [Concomitant]
     Active Substance: PEMBROLIZUMAB
     Indication: Renal cell carcinoma stage IV
     Dosage: EVERY 6 WEEKS
  4. KEYTRUDA [Concomitant]
     Active Substance: PEMBROLIZUMAB
     Dosage: EVERY 6 WEEKS
     Dates: start: 20240314

REACTIONS (3)
  - Aphonia [Recovering/Resolving]
  - Laryngitis [Unknown]
  - Headache [Recovering/Resolving]

NARRATIVE: CASE EVENT DATE: 20240101
